FAERS Safety Report 11058298 (Version 1)
Quarter: 2015Q2

REPORT INFORMATION
  Report Type: Spontaneous
  Country: US (occurrence: None)
  Receive Date: 20150420
  Receipt Date: 20150420
  Transmission Date: 20150821
  Serious: No
  Sender: FDA-Public Use
  Company Number: AEGR001158

PATIENT
  Age: 61 Year
  Sex: Male
  Weight: 86.2 kg

DRUGS (11)
  1. ASPIRIN (ACETYLSALICYLIC ACID) [Concomitant]
     Active Substance: ASPIRIN
  2. LOPRESSOR HCT (HYDROCHLOROTHIAZIDE, METOPROLOL TARTRATE) [Concomitant]
  3. LIPITOR [Concomitant]
     Active Substance: ATORVASTATIN CALCIUM
  4. OMEPRAZOLE. [Concomitant]
     Active Substance: OMEPRAZOLE
  5. JUXTAPID [Suspect]
     Active Substance: LOMITAPIDE MESYLATE
     Indication: TYPE IIA HYPERLIPIDAEMIA
     Route: 048
     Dates: start: 20150109, end: 2015
  6. TYLENOL [Concomitant]
     Active Substance: ACETAMINOPHEN
  7. FOLIC ACID. [Concomitant]
     Active Substance: FOLIC ACID
  8. MULTIPLE VITAMINS (ASCORBIC ACID, ERGOCALCIFEROL, FOLIC ACID, RETINOL, TOCOPHEROL, VITAMIN B NOS) [Concomitant]
  9. VITAMIN C (CALCIUM ASCORBATE) [Concomitant]
  10. TUMS E-X (CALCIUM CARBONATE) [Concomitant]
  11. COLACE [Concomitant]
     Active Substance: DOCUSATE SODIUM

REACTIONS (11)
  - Therapy cessation [None]
  - Micturition urgency [None]
  - Vision blurred [None]
  - Diarrhoea [None]
  - Nausea [None]
  - Pollakiuria [None]
  - Dyspepsia [None]
  - Abdominal pain [None]
  - Urethritis [None]
  - Flatulence [None]
  - Chest pain [None]

NARRATIVE: CASE EVENT DATE: 20150118
